FAERS Safety Report 25856286 (Version 2)
Quarter: 2025Q4

REPORT INFORMATION
  Report Type: Report from Study
  Country: CA (occurrence: CA)
  Receive Date: 20250928
  Receipt Date: 20251003
  Transmission Date: 20260117
  Serious: Yes (Hospitalization)
  Sender: ABBVIE
  Company Number: CA-ABBVIE-6472700

PATIENT
  Age: 49 Year
  Sex: Female

DRUGS (1)
  1. SKYRIZI [Suspect]
     Active Substance: RISANKIZUMAB-RZAA
     Indication: Colitis ulcerative
     Route: 042
     Dates: start: 20250916

REACTIONS (14)
  - Chest discomfort [Unknown]
  - Photophobia [Unknown]
  - Headache [Recovered/Resolved]
  - Hyperhidrosis [Unknown]
  - Fatigue [Unknown]
  - Pain in extremity [Unknown]
  - Musculoskeletal disorder [Unknown]
  - Hypotension [Unknown]
  - Chromaturia [Unknown]
  - Arthralgia [Unknown]
  - Gingival swelling [Unknown]
  - Pruritus [Unknown]
  - Back pain [Unknown]
  - Rash [Unknown]

NARRATIVE: CASE EVENT DATE: 20250901
